FAERS Safety Report 5660073-5 (Version None)
Quarter: 2008Q1

REPORT INFORMATION
  Report Type: 
  Country: None (occurrence: None)
  Receive Date: 20080311
  Receipt Date: 20070906
  Transmission Date: 20080703
  Serious: No
  Sender: FDA-Public Use
  Company Number: US-BAYER-200712876BCC

PATIENT
  Age: 63 Year
  Sex: Female
  Weight: 95 kg

DRUGS (2)
  1. ALEVE GELCAP [Suspect]
     Indication: ARTHRALGIA
     Route: 048
     Dates: start: 20070906
  2. TWO BLOOD PRESSURE MEDICATIONS [Concomitant]

REACTIONS (1)
  - NO ADVERSE EVENT [None]
